FAERS Safety Report 6717284-7 (Version None)
Quarter: 2010Q2

REPORT INFORMATION
  Report Type: 
  Country: None (occurrence: None)
  Receive Date: 20100510
  Receipt Date: 20100429
  Transmission Date: 20101027
  Serious: Yes (Other)
  Sender: FDA-Public Use
  Company Number: US-ALEXION-A201000492

PATIENT

DRUGS (1)
  1. SOLIRIS [Suspect]
     Dosage: 900 MG, Q2W
     Route: 042

REACTIONS (7)
  - BACK PAIN [None]
  - FATIGUE [None]
  - FEELING HOT [None]
  - INFLAMMATION [None]
  - PAIN IN EXTREMITY [None]
  - THYROID CANCER [None]
  - VASCULITIS [None]
